FAERS Safety Report 10776216 (Version 1)
Quarter: 2015Q1

REPORT INFORMATION
  Report Type: Other
  Country: US (occurrence: US)
  Receive Date: 20150209
  Receipt Date: 20150209
  Transmission Date: 20150721
  Serious: Yes (Death)
  Sender: FDA-Public Use
  Company Number: US-FRI-1000074281

PATIENT
  Age: 21 Year
  Sex: Female

DRUGS (11)
  1. COCAINE [Suspect]
     Active Substance: COCAINE
  2. PROMETHAZINE [Suspect]
     Active Substance: PROMETHAZINE\PROMETHAZINE HYDROCHLORIDE
  3. BENZODIAZEPINE [Suspect]
     Active Substance: BENZODIAZEPINE
  4. MORPHINE [Suspect]
     Active Substance: MORPHINE
  5. FLUOXETINE [Suspect]
     Active Substance: FLUOXETINE\FLUOXETINE HYDROCHLORIDE
  6. MARIJUANA [Suspect]
     Active Substance: CANNABIS SATIVA SUBSP. INDICA TOP
  7. CITALOPRAM [Suspect]
     Active Substance: CITALOPRAM HYDROBROMIDE
  8. OXYCODONE [Suspect]
     Active Substance: OXYCODONE
  9. LIDOCAINE. [Suspect]
     Active Substance: LIDOCAINE
  10. AMPHETAMINE [Suspect]
     Active Substance: AMPHETAMINE
  11. DEXTROMETHORPHAN [Suspect]
     Active Substance: DEXTROMETHORPHAN

REACTIONS (2)
  - Death [Fatal]
  - Cardio-respiratory arrest [Fatal]
